FAERS Safety Report 6128396-3 (Version None)
Quarter: 2009Q1

REPORT INFORMATION
  Report Type: 
  Country: None (occurrence: None)
  Receive Date: 20090323
  Receipt Date: 20090309
  Transmission Date: 20090719
  Serious: Yes (Death)
  Sender: FDA-Public Use
  Company Number: GB-ROCHE-620011

PATIENT
  Age: 18 Year
  Sex: Female

DRUGS (2)
  1. CAPECITABINE [Suspect]
     Route: 048
  2. OXALIPLATIN [Concomitant]

REACTIONS (1)
  - DEATH [None]
